FAERS Safety Report 7797919-0 (Version None)
Quarter: 2011Q4

REPORT INFORMATION
  Report Type: 
  Country: None (occurrence: None)
  Receive Date: 20111005
  Receipt Date: 20110930
  Transmission Date: 20120403
  Serious: Yes (Death, Hospitalization)
  Sender: FDA-Public Use
  Company Number: US-GLAXOSMITHKLINE-A0744012A

PATIENT
  Age: 70 Year
  Sex: Male
  Weight: 119.1 kg

DRUGS (11)
  1. PRILOSEC [Concomitant]
  2. AVANDIA [Suspect]
     Indication: TYPE 2 DIABETES MELLITUS
     Dosage: 4MG PER DAY
     Route: 048
     Dates: start: 20051201, end: 20070301
  3. DUONEB [Concomitant]
  4. LORCET-HD [Concomitant]
  5. PREDNISONE [Concomitant]
  6. LORAZEPAM [Concomitant]
  7. SLIDING SCALE INSULIN [Concomitant]
     Dates: start: 20050101, end: 20070101
  8. SINGULAIR [Concomitant]
  9. FLONASE [Concomitant]
  10. METFORMIN HCL [Concomitant]
     Dates: start: 20050101, end: 20070101
  11. METOPROLOL TARTRATE [Concomitant]

REACTIONS (7)
  - CARDIAC FAILURE CONGESTIVE [None]
  - FRACTURE [None]
  - DEATH [None]
  - LUNG DISORDER [None]
  - CARDIOVASCULAR DISORDER [None]
  - VISUAL IMPAIRMENT [None]
  - OEDEMA [None]
